FAERS Safety Report 6905975-4 (Version None)
Quarter: 2010Q3

REPORT INFORMATION
  Report Type: 
  Country: None (occurrence: None)
  Receive Date: 20100803
  Receipt Date: 20100803
  Transmission Date: 20110219
  Serious: Yes (Life-Threatening, Hospitalization)
  Sender: FDA-Public Use
  Company Number: None

PATIENT
  Age: 53 Year
  Sex: Male
  Weight: 92.4 kg

DRUGS (1)
  1. ASPIRIN [Suspect]
     Indication: PROPHYLAXIS
     Dosage: 81 MG EVERY DAY PO
     Route: 048
     Dates: start: 20100422, end: 20100427

REACTIONS (6)
  - ANAEMIA [None]
  - DUODENAL ULCER [None]
  - FATIGUE [None]
  - HELICOBACTER TEST POSITIVE [None]
  - ORTHOSTATIC HYPOTENSION [None]
  - UPPER GASTROINTESTINAL HAEMORRHAGE [None]
